FAERS Safety Report 7840905-2 (Version None)
Quarter: 2011Q4

REPORT INFORMATION
  Report Type: 
  Country: None (occurrence: None)
  Receive Date: 20111021
  Receipt Date: 20111021
  Transmission Date: 20120403
  Serious: Yes (Other)
  Sender: FDA-Public Use
  Company Number: None

PATIENT
  Sex: Female
  Weight: 85.7298 kg

DRUGS (4)
  1. FLUOXETINE HCL [Suspect]
     Indication: DEPRESSION
     Dosage: 1 PER DAY CAPSULE 1 P.D. VIA
     Dates: start: 19910101
  2. LAMICTAL [Concomitant]
  3. ATIVAN [Suspect]
     Indication: DEPRESSION
     Dosage: UP TO 3 A DAY - AS NEEDED 1-3 PD  PRESPYTERIAN
     Dates: start: 19910101
  4. ASPIRIN [Concomitant]

REACTIONS (3)
  - LIP SWELLING [None]
  - THERMAL BURN [None]
  - CAPSULE PHYSICAL ISSUE [None]
